FAERS Safety Report 11778710 (Version 1)
Quarter: 2015Q4

REPORT INFORMATION
  Report Type: Spontaneous
  Country: FR (occurrence: FR)
  Receive Date: 20151125
  Receipt Date: 20151125
  Transmission Date: 20160304
  Serious: Yes (Congenital Anomaly, Other)
  Sender: FDA-Public Use
  Company Number: FR-JNJFOC-20151120936

PATIENT

DRUGS (2)
  1. XARELTO [Suspect]
     Active Substance: RIVAROXABAN
     Indication: PRODUCT USED FOR UNKNOWN INDICATION
     Route: 064
  2. DESOGESTREL [Concomitant]
     Active Substance: DESOGESTREL
     Route: 064

REACTIONS (2)
  - Congenital cerebellar agenesis [Unknown]
  - Congenital absence of vertebra [Unknown]
